FAERS Safety Report 8367730-0 (Version None)
Quarter: 2012Q2

REPORT INFORMATION
  Report Type: 
  Country: None (occurrence: None)
  Receive Date: 20120517
  Receipt Date: 20120510
  Transmission Date: 20120825
  Serious: Yes (Other)
  Sender: FDA-Public Use
  Company Number: US-GLAXOSMITHKLINE-A0977170A

PATIENT
  Age: 77 Year
  Sex: Male

DRUGS (2)
  1. AVODART [Suspect]
     Indication: PROPHYLAXIS
     Dosage: .5MG PER DAY
     Route: 048
     Dates: start: 20120426
  2. ENBREL [Concomitant]

REACTIONS (1)
  - PROSTATIC HAEMORRHAGE [None]
